FAERS Safety Report 6171081-2 (Version None)
Quarter: 2009Q2

REPORT INFORMATION
  Report Type: 
  Country: None (occurrence: None)
  Receive Date: 20090429
  Receipt Date: 20090417
  Transmission Date: 20091009
  Serious: Yes (Hospitalization, Other)
  Sender: FDA-Public Use
  Company Number: PHHY2009JP12249

PATIENT
  Sex: Female
  Weight: 47 kg

DRUGS (4)
  1. TEGRETOL [Suspect]
     Indication: EPILEPSY
     Dosage: THREE TABLETS OF 200 MG DAILY
     Route: 048
     Dates: start: 20070524, end: 20090329
  2. TEGRETOL [Suspect]
     Dosage: 26 TABLETS AT ONCE (5200 MG)
     Route: 048
     Dates: start: 20090330, end: 20090330
  3. TEGRETOL [Suspect]
     Dosage: THREE TABLETS OF 200 MG DAILY
     Route: 048
  4. SELENICA-R [Concomitant]
     Indication: EPILEPSY
     Dosage: 1 G, UNK
     Route: 048
     Dates: start: 20070306

REACTIONS (19)
  - ANTICONVULSANT DRUG LEVEL DECREASED [None]
  - ANTICONVULSANT DRUG LEVEL INCREASED [None]
  - BLOOD PRESSURE DECREASED [None]
  - COMA [None]
  - DEPRESSED LEVEL OF CONSCIOUSNESS [None]
  - DRUG TOXICITY [None]
  - GASTRIC LAVAGE [None]
  - HEART RATE INCREASED [None]
  - INTENTIONAL OVERDOSE [None]
  - INTENTIONAL SELF-INJURY [None]
  - LYMPHOCYTE PERCENTAGE DECREASED [None]
  - MONOCYTE PERCENTAGE DECREASED [None]
  - NEUTROPHIL PERCENTAGE INCREASED [None]
  - PCO2 DECREASED [None]
  - PO2 INCREASED [None]
  - SOMNOLENCE [None]
  - UNRESPONSIVE TO STIMULI [None]
  - VOMITING [None]
  - WHITE BLOOD CELL COUNT INCREASED [None]
